FAERS Safety Report 16946655 (Version 2)
Quarter: 2019Q4

REPORT INFORMATION
  Report Type: Spontaneous
  Country: US (occurrence: US)
  Receive Date: 20191022
  Receipt Date: 20191126
  Transmission Date: 20200122
  Serious: No
  Sender: FDA-Public Use
  Company Number: US-PFIZER INC-2019451221

PATIENT
  Age: 69 Year
  Sex: Female

DRUGS (4)
  1. ZITHROMAX [Suspect]
     Active Substance: AZITHROMYCIN DIHYDRATE
     Dosage: UNK
     Dates: start: 2019
  2. CORTISONE [Suspect]
     Active Substance: CORTISONE
     Indication: ASTHMA
     Dosage: UNK
     Dates: start: 2019
  3. PREDNISONE. [Suspect]
     Active Substance: PREDNISONE
     Dosage: 3 ROUNDS OF PREDNISONE
     Dates: start: 2019
  4. AZITHROMYCIN ANHYDROUS. [Suspect]
     Active Substance: AZITHROMYCIN ANHYDROUS
     Dosage: UNK
     Dates: start: 2019

REACTIONS (7)
  - Rotator cuff syndrome [Unknown]
  - Muscular weakness [Unknown]
  - Tendon rupture [Unknown]
  - Hypertension [Unknown]
  - Tendon discomfort [Unknown]
  - Limb injury [Unknown]
  - Urinary tract infection [Unknown]

NARRATIVE: CASE EVENT DATE: 2019
